FAERS Safety Report 15595144 (Version 4)
Quarter: 2020Q2

REPORT INFORMATION
  Report Type: Report from Study
  Country: US (occurrence: US)
  Receive Date: 20181107
  Receipt Date: 20200402
  Transmission Date: 20200713
  Serious: Yes (Other)
  Sender: FDA-Public Use
  Company Number: PHEH2018US046541

PATIENT
  Age: 53 Year
  Sex: Female

DRUGS (2)
  1. GILENYA [Suspect]
     Active Substance: FINGOLIMOD HYDROCHLORIDE
     Indication: MULTIPLE SCLEROSIS
     Dosage: 0.5 MG, QD
     Route: 048
     Dates: start: 20180430
  2. GILENYA [Suspect]
     Active Substance: FINGOLIMOD HYDROCHLORIDE
     Indication: RELAPSING-REMITTING MULTIPLE SCLEROSIS
     Dosage: 0.5 MG, QD
     Route: 048
     Dates: start: 20180416

REACTIONS (18)
  - Multiple sclerosis relapse [Unknown]
  - Tenderness [Unknown]
  - Fall [Recovering/Resolving]
  - Neuralgia [Unknown]
  - Tremor [Unknown]
  - Muscle contractions involuntary [Unknown]
  - Myalgia [Unknown]
  - Amnesia [Unknown]
  - Discomfort [Unknown]
  - Thinking abnormal [Unknown]
  - Fatigue [Unknown]
  - Balance disorder [Recovering/Resolving]
  - Arthralgia [Unknown]
  - Speech disorder [Unknown]
  - Headache [Unknown]
  - Sexual dysfunction [Unknown]
  - Pain in extremity [Unknown]
  - Hypersensitivity [Unknown]

NARRATIVE: CASE EVENT DATE: 20181029
